FAERS Safety Report 7361800-1 (Version None)
Quarter: 2011Q1

REPORT INFORMATION
  Report Type: 
  Country: None (occurrence: None)
  Receive Date: 20110318
  Receipt Date: 20110316
  Transmission Date: 20110831
  Serious: Yes (Death)
  Sender: FDA-Public Use
  Company Number: IT-PURDUE-GBR-2010-0007103

PATIENT

DRUGS (8)
  1. ZOLPIDEM [Suspect]
     Dosage: 5 MG, UNK
  2. CLOZAPINE [Suspect]
  3. NON-PMN BUPRENORPHINE [Suspect]
     Dosage: 8 MG, UNK
  4. HYPNOTICS AND SEDATIVES [Concomitant]
  5. ANTIDEPRESSANTS [Concomitant]
  6. MINIAS [Suspect]
     Dosage: 2 MG, UNK
  7. LORMETAZEPAM [Suspect]
  8. AMOXAPINE [Suspect]

REACTIONS (1)
  - DEATH [None]
